FAERS Safety Report 5299062-1 (Version None)
Quarter: 2007Q2

REPORT INFORMATION
  Report Type: 
  Country: None (occurrence: None)
  Receive Date: 20070417
  Receipt Date: 20070410
  Transmission Date: 20071010
  Serious: Yes (Other)
  Sender: FDA-Public Use
  Company Number: 2007-001216

PATIENT
  Age: 69 Year
  Sex: Female
  Weight: 53 kg

DRUGS (2)
  1. FLOLAN [Suspect]
     Indication: PULMONARY HYPERTENSION
     Dosage: 34NGKM UNKNOWN
     Route: 042
     Dates: start: 20010101
  2. INFUSION FLUID [Concomitant]

REACTIONS (2)
  - CATHETER RELATED COMPLICATION [None]
  - PHARMACEUTICAL PRODUCT COMPLAINT [None]
